FAERS Safety Report 13610823 (Version 3)
Quarter: 2017Q3

REPORT INFORMATION
  Report Type: Report from Study
  Country: TW (occurrence: TW)
  Receive Date: 20170605
  Receipt Date: 20170820
  Transmission Date: 20171127
  Serious: Yes (Death, Life-Threatening, Hospitalization, Other)
  Sender: FDA-Public Use
  Company Number: PHHY2017TW057194

PATIENT
  Age: 68 Year
  Sex: Male
  Weight: 56.8 kg

DRUGS (7)
  1. ENTECAVIR. [Concomitant]
     Active Substance: ENTECAVIR
     Indication: HEPATITIS B
     Dosage: UNK
     Route: 065
     Dates: start: 201109
  2. EXJADE [Suspect]
     Active Substance: DEFERASIROX
     Indication: MYELODYSPLASTIC SYNDROME TRANSFORMATION
     Dosage: 7 MG, QD
     Route: 048
     Dates: start: 20160826, end: 20170330
  3. AZACITIDINE. [Concomitant]
     Active Substance: AZACITIDINE
     Dosage: UNK
     Route: 065
     Dates: start: 20170330, end: 20170413
  4. EXJADE [Suspect]
     Active Substance: DEFERASIROX
     Indication: MYELOFIBROSIS
  5. AZACITIDINE. [Concomitant]
     Active Substance: AZACITIDINE
     Indication: PRODUCT USED FOR UNKNOWN INDICATION
     Dosage: UNK
     Route: 065
     Dates: start: 20160929, end: 20170216
  6. TENOFOVIR [Concomitant]
     Active Substance: TENOFOVIR
     Indication: HEPATITIS B
     Dosage: UNK
     Route: 065
     Dates: start: 20160812
  7. EXJADE [Suspect]
     Active Substance: DEFERASIROX
     Indication: MYELODYSPLASTIC SYNDROME

REACTIONS (38)
  - Lung consolidation [Not Recovered/Not Resolved]
  - Cardiac arrest [Unknown]
  - Renal impairment [Unknown]
  - Thrombocytopenia [Unknown]
  - Abscess soft tissue [Unknown]
  - Gastrointestinal infection [Unknown]
  - Death [Fatal]
  - Spinal osteoarthritis [Not Recovered/Not Resolved]
  - Exostosis [Not Recovered/Not Resolved]
  - Aeromonas infection [Unknown]
  - Pleural effusion [Unknown]
  - Delirium [Unknown]
  - Acute kidney injury [Unknown]
  - Anuria [Unknown]
  - Lung infection [Not Recovered/Not Resolved]
  - Pyrexia [Not Recovered/Not Resolved]
  - Hypocalcaemia [Recovered/Resolved]
  - Systemic candida [Unknown]
  - Hyperkalaemia [Unknown]
  - Hypocalcaemia [Recovered/Resolved]
  - Pancytopenia [Recovering/Resolving]
  - Lung infiltration [Not Recovered/Not Resolved]
  - Septic shock [Unknown]
  - Electrocardiogram QT prolonged [Recovering/Resolving]
  - Haemothorax [Unknown]
  - Mydriasis [Unknown]
  - Escherichia sepsis [Unknown]
  - Pulmonary oedema [Unknown]
  - Septic shock [Unknown]
  - Abdominal distension [Unknown]
  - Splenomegaly [Unknown]
  - Hypoalbuminaemia [Unknown]
  - Febrile neutropenia [Recovering/Resolving]
  - Fungal infection [Not Recovered/Not Resolved]
  - Pneumonia [Unknown]
  - Altered state of consciousness [Unknown]
  - Hepatic cirrhosis [Unknown]
  - Hypocalcaemia [Recovering/Resolving]

NARRATIVE: CASE EVENT DATE: 20170330
